FAERS Safety Report 16663893 (Version 2)
Quarter: 2019Q3

REPORT INFORMATION
  Report Type: Spontaneous
  Country: JP (occurrence: JP)
  Receive Date: 20190802
  Receipt Date: 20190809
  Transmission Date: 20191004
  Serious: Yes (Other)
  Sender: FDA-Public Use
  Company Number: JP-UCBSA-2019027554

PATIENT
  Age: 70 Year
  Sex: Male

DRUGS (8)
  1. E KEPPRA [Suspect]
     Active Substance: LEVETIRACETAM
     Indication: EPILEPSY
     Dosage: 1000 MILLIGRAM DAILY
     Route: 048
     Dates: end: 20190520
  2. LANDSEN [Concomitant]
     Active Substance: CLONAZEPAM
     Indication: EPILEPSY
     Route: 048
  3. GASCON [Concomitant]
     Active Substance: DIMETHICONE
     Indication: CONSTIPATION
     Route: 048
  4. E KEPPRA [Suspect]
     Active Substance: LEVETIRACETAM
     Dosage: 250 MILLIGRAM DAILY
     Route: 048
     Dates: start: 20190604, end: 20190618
  5. MAGMITT [Concomitant]
     Active Substance: MAGNESIUM OXIDE
     Indication: CONSTIPATION
     Route: 048
  6. VIMPAT [Suspect]
     Active Substance: LACOSAMIDE
     Indication: EPILEPSY
     Dosage: 200 MILLIGRAM, 2X/DAY (BID)
     Route: 048
     Dates: start: 20190507
  7. E KEPPRA [Suspect]
     Active Substance: LEVETIRACETAM
     Dosage: 600 MILLIGRAM DAILY
     Route: 048
     Dates: start: 20190521, end: 20190603
  8. BAYASPIRIN [Concomitant]
     Active Substance: ASPIRIN
     Indication: CEREBRAL INFARCTION
     Route: 048

REACTIONS (3)
  - Polyuria [Not Recovered/Not Resolved]
  - Intentional self-injury [Unknown]
  - Aggression [Unknown]

NARRATIVE: CASE EVENT DATE: 20190618
